FAERS Safety Report 5756164-0 (Version None)
Quarter: 2008Q2

REPORT INFORMATION
  Report Type: 
  Country: None (occurrence: None)
  Receive Date: 20080602
  Receipt Date: 20080521
  Transmission Date: 20081010
  Serious: Yes (Other)
  Sender: FDA-Public Use
  Company Number: JP-PFIZER INC-2007091527

PATIENT
  Age: 62 Year
  Sex: Female

DRUGS (5)
  1. ZOLOFT [Suspect]
     Indication: DEPRESSION
     Dosage: DAILY DOSE:100MG
     Route: 048
     Dates: start: 20070514, end: 20070602
  2. RITALIN [Interacting]
     Indication: DEPRESSION
     Dosage: DAILY DOSE:10MG
     Route: 048
     Dates: start: 20070528, end: 20070602
  3. PAROXETINE HCL [Concomitant]
     Route: 048
  4. MILNACIPRAN [Concomitant]
     Route: 048
  5. AMOXAPINE [Concomitant]
     Route: 048

REACTIONS (2)
  - DRUG INTERACTION [None]
  - SEROTONIN SYNDROME [None]
